FAERS Safety Report 22098727 (Version 1)
Quarter: 2023Q1

REPORT INFORMATION
  Report Type: Spontaneous
  Country: US (occurrence: US)
  Receive Date: 20230315
  Receipt Date: 20230315
  Transmission Date: 20230418
  Serious: Yes (Other)
  Sender: FDA-Public Use
  Company Number: US-ASTELLAS-2023US008114

PATIENT
  Sex: Female

DRUGS (3)
  1. PADCEV [Suspect]
     Active Substance: ENFORTUMAB VEDOTIN-EJFV
     Indication: Product used for unknown indication
     Dosage: UNK UNK, CYCLIC
     Route: 065
     Dates: start: 202206
  2. PADCEV [Suspect]
     Active Substance: ENFORTUMAB VEDOTIN-EJFV
     Dosage: UNK UNK, CYCLIC
     Route: 065
  3. CISPLATIN [Concomitant]
     Active Substance: CISPLATIN
     Indication: Bladder cancer
     Dosage: UNK UNK, UNKNOWN FREQ.
     Route: 065

REACTIONS (8)
  - Hip fracture [Unknown]
  - Neuropathy peripheral [Recovering/Resolving]
  - Alopecia [Unknown]
  - Hair growth abnormal [Unknown]
  - Dysgeusia [Recovering/Resolving]
  - Rash [Unknown]
  - Fatigue [Unknown]
  - Drug ineffective [Unknown]
